FAERS Safety Report 8576513-8 (Version None)
Quarter: 2012Q3

REPORT INFORMATION
  Report Type: 
  Country: None (occurrence: None)
  Receive Date: 20120807
  Receipt Date: 20120803
  Transmission Date: 20120928
  Serious: No
  Sender: FDA-Public Use
  Company Number: US-PFIZER INC-2012149934

PATIENT
  Age: 61 Year
  Sex: Female
  Weight: 54.875 kg

DRUGS (4)
  1. PREMARIN [Suspect]
     Indication: DYSPAREUNIA
     Dosage: 0.5 MG, 2X/WEEK, (FROM THE THIRD WEEK)
     Route: 067
     Dates: start: 20120618
  2. FOSAMAX [Concomitant]
     Indication: OSTEOPOROSIS
     Dosage: 70 MG, WEEKLY
  3. PREMARIN [Suspect]
     Indication: ATROPHIC VULVOVAGINITIS
     Dosage: 0.5 MG, 1X/DAY, FOR TWO WEEKS
     Route: 067
     Dates: start: 20120618
  4. LEVOTHYROXINE [Concomitant]
     Indication: THYROID DISORDER
     Dosage: 75 UG, 1X/DAY

REACTIONS (2)
  - PRODUCT QUALITY ISSUE [None]
  - VULVOVAGINAL PAIN [None]
